FAERS Safety Report 23065605 (Version 1)
Quarter: 2023Q4

REPORT INFORMATION
  Report Type: Other
  Country: BE (occurrence: None)
  Receive Date: 20231014
  Receipt Date: 20231014
  Transmission Date: 20240110
  Serious: Yes (Other)
  Sender: FDA-Public Use
  Company Number: BE-Square-000179

PATIENT
  Age: 49 Year
  Sex: Female

DRUGS (5)
  1. ACYCLOVIR [Suspect]
     Active Substance: ACYCLOVIR
     Indication: Oral herpes
     Dosage: 10 MG/KG/8H
  2. SODIUM CHLORIDE [Concomitant]
     Active Substance: SODIUM CHLORIDE
     Indication: Supportive care
     Dosage: 0.9 PERCENTAGE
  3. ACETAMINOPHEN [Concomitant]
     Active Substance: ACETAMINOPHEN
     Indication: Supportive care
     Dosage: 1 G
  4. ALIZAPRIDE [Concomitant]
     Active Substance: ALIZAPRIDE
     Indication: Supportive care
     Dosage: 50 MG
  5. ACYCLOVIR [Suspect]
     Active Substance: ACYCLOVIR
     Indication: Oral herpes
     Route: 048

REACTIONS (3)
  - Acute kidney injury [Recovered/Resolved]
  - Condition aggravated [Recovered/Resolved]
  - Toxic encephalopathy [Recovered/Resolved]
